FAERS Safety Report 21157800 (Version 1)
Quarter: 2022Q3

REPORT INFORMATION
  Report Type: Spontaneous
  Country: NO (occurrence: NO)
  Receive Date: 20220801
  Receipt Date: 20220801
  Transmission Date: 20221027
  Serious: Yes (Hospitalization)
  Sender: FDA-Public Use
  Company Number: None

PATIENT
  Age: 34 Year
  Sex: Male

DRUGS (3)
  1. ELEXACAFTOR\IVACAFTOR\TEZACAFTOR [Suspect]
     Active Substance: ELEXACAFTOR\IVACAFTOR\TEZACAFTOR
     Indication: Cystic fibrosis
     Dosage: (75 MG IVACAFTOR/50 MG TEZACAFTOR/100 MG ELEXACAFTOR), 2 TABS X 2 DAILY
     Route: 048
     Dates: start: 20220615, end: 20220706
  2. KALYDECO [Suspect]
     Active Substance: IVACAFTOR
     Indication: Cystic fibrosis
     Dosage: 150 MG X 1 DAILY
     Route: 048
     Dates: start: 20220615, end: 20220706
  3. CREON [Concomitant]
     Active Substance: PANCRELIPASE AMYLASE\PANCRELIPASE LIPASE\PANCRELIPASE PROTEASE
     Indication: Cystic fibrosis
     Dosage: (AMYLASE 18000 IU/ LIPASE 25000 IU/ PROTEASE 100 IU), 25000 U 1 X DAILY

REACTIONS (7)
  - Chromaturia [Recovering/Resolving]
  - Jaundice [Recovering/Resolving]
  - Faeces pale [Recovering/Resolving]
  - Abdominal pain [Recovering/Resolving]
  - Gastric ulcer [Recovering/Resolving]
  - Gallbladder oedema [Unknown]
  - Cholecystitis [Unknown]

NARRATIVE: CASE EVENT DATE: 20220704
